FAERS Safety Report 9064119 (Version 3)
Quarter: 2013Q3

REPORT INFORMATION
  Report Type: Report from Study
  Country: RU (occurrence: RU)
  Receive Date: 20130128
  Receipt Date: 20130821
  Transmission Date: 20140515
  Serious: Yes (Hospitalization)
  Sender: FDA-Public Use
  Company Number: 2012SP003387

PATIENT
  Age: 54 Year
  Sex: Male
  Weight: 62 kg

DRUGS (4)
  1. SM-13496 [Suspect]
     Indication: BIPOLAR DISORDER
     Route: 048
     Dates: start: 20121113, end: 20121122
  2. SM-13496 [Suspect]
     Indication: BIPOLAR DISORDER
     Route: 048
     Dates: start: 20121002, end: 20121112
  3. DEPAKINE CHRONO [Concomitant]
     Indication: BIPOLAR DISORDER
     Route: 048
     Dates: start: 20121230
  4. DEPAKINE CHRONO [Concomitant]
     Indication: BIPOLAR DISORDER
     Route: 048
     Dates: start: 20121002, end: 20121122

REACTIONS (1)
  - Depressive symptom [Recovered/Resolved]
